FAERS Safety Report 9432444 (Version 4)
Quarter: 2013Q4

REPORT INFORMATION
  Report Type: Spontaneous
  Country: US (occurrence: US)
  Receive Date: 20130731
  Receipt Date: 20131022
  Transmission Date: 20140711
  Serious: Yes (Other)
  Sender: FDA-Public Use
  Company Number: US-JNJFOC-20130713847

PATIENT
  Age: 76 Year
  Sex: Male
  Weight: 102.97 kg

DRUGS (10)
  1. XARELTO [Suspect]
     Indication: CEREBROVASCULAR ACCIDENT PROPHYLAXIS
     Route: 048
  2. XARELTO [Suspect]
     Indication: CEREBROVASCULAR ACCIDENT PROPHYLAXIS
     Route: 048
     Dates: start: 20130711, end: 20130718
  3. XARELTO [Suspect]
     Indication: ATRIAL FIBRILLATION
     Route: 048
  4. XARELTO [Suspect]
     Indication: ATRIAL FIBRILLATION
     Route: 048
     Dates: start: 20130711, end: 20130718
  5. VERAPAMIL [Concomitant]
     Indication: HYPERTENSION
     Route: 048
     Dates: start: 201301
  6. TAMSULOSIN [Concomitant]
     Indication: PROSTATIC DISORDER
     Route: 048
     Dates: start: 2005
  7. RAMIPRIL [Concomitant]
     Indication: HYPERTENSION
     Route: 065
  8. MULTIVITAMINS [Concomitant]
     Route: 065
  9. VITAMIN D3 [Concomitant]
     Route: 065
  10. CALCIUM MAGNESIUM ZINC [Concomitant]
     Route: 065

REACTIONS (3)
  - Dyspnoea [Recovered/Resolved]
  - Urinary incontinence [Recovered/Resolved]
  - Dizziness [Recovered/Resolved]
